FAERS Safety Report 4682230-7 (Version None)
Quarter: 2005Q2

REPORT INFORMATION
  Report Type: 
  Country: None (occurrence: None)
  Receive Date: 20050531
  Receipt Date: 20050518
  Transmission Date: 20051028
  Serious: Yes (Other)
  Sender: FDA-Public Use
  Company Number: 200410145BBE

PATIENT
  Sex: Male

DRUGS (36)
  1. GAMIMUNE N 10% [Suspect]
     Indication: HYPOGAMMAGLOBULINAEMIA
  2. GAMIMUNE N 10% [Suspect]
  3. GAMIMUNE N 10% [Suspect]
  4. GAMIMUNE N 10% [Suspect]
  5. GAMIMUNE N 10% [Suspect]
  6. GAMIMUNE N 10% [Suspect]
  7. GAMIMUNE N 10% [Suspect]
  8. GAMIMUNE N 10% [Suspect]
  9. GAMIMUNE N 10% [Suspect]
  10. GAMIMUNE N 10% [Suspect]
  11. GAMIMUNE N 10% [Suspect]
  12. GAMIMUNE N 10% [Suspect]
  13. GAMIMUNE N 10% [Suspect]
  14. GAMIMUNE N 10% [Suspect]
  15. GAMIMUNE N 10% [Suspect]
  16. GAMIMUNE N 10% [Suspect]
  17. IMMUNOGLOBULIN (BAXTER) (IMMUNOGLOBULIN) [Suspect]
  18. BENZODIAZEPINE [Concomitant]
  19. OPIATES [Concomitant]
  20. BARBITURATES [Concomitant]
  21. TRICYCLIC ANTIDEPRESSANTS [Concomitant]
  22. NEURONTIN [Concomitant]
  23. ZOSYN [Concomitant]
  24. VANCOMYCIN [Concomitant]
  25. DIFLUCAN [Concomitant]
  26. COMBIVENT [Concomitant]
  27. BACTROBAN [Concomitant]
  28. AFRIN [Concomitant]
  29. MS CONTIN [Concomitant]
  30. VALIUM [Concomitant]
  31. SOMA [Concomitant]
  32. ALLEGRA [Concomitant]
  33. PREVACID [Concomitant]
  34. LOPRESSOR [Concomitant]
  35. ADVAIR [Concomitant]
  36. CARAFATE [Concomitant]

REACTIONS (3)
  - HEPATITIS B [None]
  - HEPATITIS C [None]
  - NEUTROPHIL COUNT DECREASED [None]
